FAERS Safety Report 12589197 (Version 1)
Quarter: 2016Q3

REPORT INFORMATION
  Report Type: Spontaneous
  Country: US (occurrence: US)
  Receive Date: 20160725
  Receipt Date: 20160725
  Transmission Date: 20161109
  Serious: No
  Sender: FDA-Public Use
  Company Number: US-JNJFOC-20160513290

PATIENT
  Sex: Female

DRUGS (2)
  1. MOTRIN INFANTS [Suspect]
     Active Substance: IBUPROFEN
     Indication: PRODUCT USED FOR UNKNOWN INDICATION
     Dosage: TO TASTE THE MEDICATION ON THE OUTSIDE
     Route: 048
     Dates: start: 20160511, end: 20160511
  2. MOTRIN INFANTS [Suspect]
     Active Substance: IBUPROFEN
     Route: 048

REACTIONS (8)
  - Drug administered to patient of inappropriate age [Unknown]
  - Lacrimation increased [Recovered/Resolved]
  - Nasal discomfort [Recovered/Resolved]
  - Product contamination [Unknown]
  - Rhinorrhoea [Recovered/Resolved]
  - Product taste abnormal [Unknown]
  - Off label use [Unknown]
  - Product odour abnormal [Unknown]

NARRATIVE: CASE EVENT DATE: 20160511
